FAERS Safety Report 7607299-9 (Version None)
Quarter: 2011Q3

REPORT INFORMATION
  Report Type: 
  Country: None (occurrence: None)
  Receive Date: 20110713
  Receipt Date: 20110712
  Transmission Date: 20111222
  Serious: Yes (Hospitalization)
  Sender: FDA-Public Use
  Company Number: PHHO2008US02053

PATIENT
  Sex: Female
  Weight: 48.1 kg

DRUGS (5)
  1. EXELON [Suspect]
     Indication: DEMENTIA ALZHEIMER'S TYPE
     Dosage: UNK
     Dates: start: 20070822
  2. FOSAMAX [Concomitant]
     Indication: OSTEOPOROSIS
  3. NAMENDA [Concomitant]
     Indication: DEMENTIA ALZHEIMER'S TYPE
  4. NO TREATMENT RECEIVED [Suspect]
     Indication: DEMENTIA ALZHEIMER'S TYPE
     Dosage: 18 MG, TID
  5. LEVOXYL [Concomitant]
     Indication: HYPOTHYROIDISM

REACTIONS (5)
  - SYNCOPE [None]
  - NAUSEA [None]
  - HYDROCEPHALUS [None]
  - CEREBRAL ATROPHY [None]
  - ABDOMINAL PAIN [None]
